FAERS Safety Report 25732352 (Version 1)
Quarter: 2025Q3

REPORT INFORMATION
  Report Type: Report from Study
  Country: CA (occurrence: CA)
  Receive Date: 20250827
  Receipt Date: 20250827
  Transmission Date: 20251021
  Serious: Yes (Death)
  Sender: RIGEL PHARMACEUTICALS
  Company Number: CA-RIGEL Pharmaceuticals, INC-20250500198

PATIENT
  Age: 57 Year
  Sex: Male

DRUGS (2)
  1. FOSTAMATINIB DISODIUM [Suspect]
     Active Substance: FOSTAMATINIB DISODIUM
     Indication: Immune thrombocytopenia
     Dosage: DOSE : 100 MG FREQUENCY : EVERY 12 HOURS
     Route: 048
     Dates: start: 20220809, end: 2025
  2. FOSTAMATINIB DISODIUM [Suspect]
     Active Substance: FOSTAMATINIB DISODIUM
     Dosage: DOSE : 100 MG FREQUENCY : 2/DAYS
     Route: 048
     Dates: start: 20220809

REACTIONS (2)
  - Death [Fatal]
  - Product use issue [Unknown]

NARRATIVE: CASE EVENT DATE: 20220809
